FAERS Safety Report 19277501 (Version 2)
Quarter: 2021Q2

REPORT INFORMATION
  Report Type: Report from Study
  Country: BE (occurrence: BE)
  Receive Date: 20210520
  Receipt Date: 20210610
  Transmission Date: 20210717
  Serious: Yes (Other)
  Sender: FDA-Public Use
  Company Number: BE-UCBSA-2021002650

PATIENT
  Age: 27 Year
  Sex: Female

DRUGS (4)
  1. CERTOLIZUMAB PEGOL AVA [Suspect]
     Active Substance: CERTOLIZUMAB PEGOL
     Indication: PRODUCT USED FOR UNKNOWN INDICATION
     Dosage: UNK
  2. FURADANTINE [Concomitant]
     Active Substance: NITROFURANTOIN
     Indication: URINARY TRACT INFECTION
     Dosage: 50 MILLIGRAM, AS NEEDED (PRN)
     Route: 048
     Dates: start: 20200901
  3. ARCOXIA [Concomitant]
     Active Substance: ETORICOXIB
     Indication: RENAL PAIN
     Dosage: UNK UNK, AS NEEDED (PRN)
     Route: 048
     Dates: start: 20201130, end: 20201201
  4. BUSCOPAN [Concomitant]
     Active Substance: BUTYLSCOPOLAMINE BROMIDE
     Indication: RENAL PAIN
     Dosage: 10 MILLIGRAM, AS NEEDED (PRN)
     Route: 048
     Dates: start: 20201130, end: 20201201

REACTIONS (4)
  - Pyelonephritis [Recovered/Resolved]
  - Renal pain [Recovered/Resolved]
  - Injection site pain [Not Recovered/Not Resolved]
  - Urinary tract infection [Not Recovered/Not Resolved]

NARRATIVE: CASE EVENT DATE: 20201101
